FAERS Safety Report 25455211 (Version 1)
Quarter: 2025Q2

REPORT INFORMATION
  Report Type: Spontaneous
  Country: LB (occurrence: LB)
  Receive Date: 20250619
  Receipt Date: 20250619
  Transmission Date: 20250716
  Serious: Yes (Other)
  Sender: HIKMA
  Company Number: LB-HIKMA PHARMACEUTICALS-LB-H14001-25-07703

PATIENT
  Age: 55 Year
  Sex: Male

DRUGS (3)
  1. LETROZOLE [Suspect]
     Active Substance: LETROZOLE
     Indication: Breast cancer male
     Route: 065
     Dates: start: 202401
  2. PALBOCICLIB [Suspect]
     Active Substance: PALBOCICLIB
     Indication: Breast cancer male
     Route: 065
     Dates: start: 202401
  3. GOSERELIN [Suspect]
     Active Substance: GOSERELIN
     Indication: Breast cancer male
     Route: 065
     Dates: start: 202401

REACTIONS (1)
  - Disease progression [Unknown]
